FAERS Safety Report 6094769-0 (Version None)
Quarter: 2009Q1

REPORT INFORMATION
  Report Type: 
  Country: None (occurrence: None)
  Receive Date: 20090225
  Receipt Date: 20090217
  Transmission Date: 20090719
  Serious: Yes (Death)
  Sender: FDA-Public Use
  Company Number: 2009US000402

PATIENT
  Age: 9 Year
  Sex: Male

DRUGS (1)
  1. PROGRAF [Suspect]
     Indication: BONE MARROW TRANSPLANT
     Dosage: 0.5 MG, BID

REACTIONS (1)
  - DEATH [None]
